FAERS Safety Report 22118211 (Version 1)
Quarter: 2023Q1

REPORT INFORMATION
  Report Type: Report from Study
  Country: US (occurrence: None)
  Receive Date: 20230321
  Receipt Date: 20230321
  Transmission Date: 20230418
  Serious: Yes (Death)
  Sender: FDA-Public Use
  Company Number: US-ROCHE-3313182

PATIENT

DRUGS (3)
  1. OBINUTUZUMAB [Suspect]
     Active Substance: OBINUTUZUMAB
     Indication: Mantle cell lymphoma
     Dosage: DATE OF COMPLETION OF DOSE C3 13/SEP/2019
     Route: 042
     Dates: start: 20190719
  2. VENETOCLAX [Suspect]
     Active Substance: VENETOCLAX
     Indication: Mantle cell lymphoma
     Dosage: DATE OF COMPLETION OF DOSE C3 13/SEP/2019
     Route: 065
     Dates: start: 20190719
  3. BENDAMUSTINE [Suspect]
     Active Substance: BENDAMUSTINE
     Indication: Mantle cell lymphoma
     Dosage: DATE OF COMPLETION OF DOSE C3 13/SEP/2019
     Route: 065
     Dates: start: 20190719

REACTIONS (1)
  - Death [Fatal]
